FAERS Safety Report 6126312-1 (Version None)
Quarter: 2009Q1

REPORT INFORMATION
  Report Type: 
  Country: None (occurrence: None)
  Receive Date: 20090320
  Receipt Date: 20090309
  Transmission Date: 20090719
  Serious: Yes (Hospitalization)
  Sender: FDA-Public Use
  Company Number: CH-MERCK-0903CHE00005

PATIENT
  Age: 78 Year
  Sex: Female

DRUGS (7)
  1. FOSAMAX PLUS D [Suspect]
     Indication: OSTEOPOROSIS
     Route: 048
     Dates: start: 20070101, end: 20080201
  2. ALENDRONATE SODIUM [Suspect]
     Indication: OSTEOPOROSIS
     Route: 048
     Dates: start: 20080201, end: 20090201
  3. FOSAMAX [Suspect]
     Indication: OSTEOPOROSIS
     Route: 048
     Dates: start: 19980101, end: 20070101
  4. DURAPATITE [Concomitant]
     Route: 048
  5. CHOLECALCIFEROL [Concomitant]
     Route: 048
  6. ASPIRIN [Concomitant]
     Route: 048
  7. CANDESARTAN CILEXETIL [Concomitant]
     Route: 048

REACTIONS (1)
  - PATHOLOGICAL FRACTURE [None]
